FAERS Safety Report 6886479-4 (Version None)
Quarter: 2010Q3

REPORT INFORMATION
  Report Type: 
  Country: None (occurrence: None)
  Receive Date: 20100730
  Receipt Date: 20100713
  Transmission Date: 20110219
  Serious: Yes (Hospitalization, Other)
  Sender: FDA-Public Use
  Company Number: US-ASTRAZENECA-2010SE33287

PATIENT
  Age: 378 Month
  Sex: Female

DRUGS (7)
  1. SEROQUEL [Suspect]
     Route: 048
     Dates: start: 20071115
  2. BUSPAR [Concomitant]
     Dates: start: 20070101
  3. TOPAMAX [Concomitant]
     Dates: start: 20070101
  4. ALLEGRA [Concomitant]
     Dates: start: 20070101
  5. PREMARIN [Concomitant]
     Dates: start: 20070101
  6. KLONOPIN [Concomitant]
     Dates: start: 20070101
  7. XANAX [Concomitant]
     Dates: start: 20080205

REACTIONS (13)
  - ABDOMINAL PAIN [None]
  - CHOLECYSTITIS CHRONIC [None]
  - DEPRESSION [None]
  - GASTRITIS [None]
  - GASTRODUODENITIS [None]
  - GASTROOESOPHAGEAL REFLUX DISEASE [None]
  - GENERALISED ANXIETY DISORDER [None]
  - HYPERLIPIDAEMIA [None]
  - LEUKOCYTOSIS [None]
  - MIGRAINE [None]
  - PANCREATITIS [None]
  - PANCREATITIS ACUTE [None]
  - PANCREATITIS CHRONIC [None]
